FAERS Safety Report 8045445-6 (Version None)
Quarter: 2012Q1

REPORT INFORMATION
  Report Type: 
  Country: None (occurrence: None)
  Receive Date: 20120113
  Receipt Date: 20120109
  Transmission Date: 20120608
  Serious: Yes (Other)
  Sender: FDA-Public Use
  Company Number: US-ALEXION PHARMACEUTICALS INC.-A201101865

PATIENT
  Sex: Female

DRUGS (6)
  1. MULTI-VITAMIN [Concomitant]
  2. SOLIRIS [Suspect]
     Indication: PAROXYSMAL NOCTURNAL HAEMOGLOBINURIA
     Dosage: UNK, LOADING DOSE
     Route: 042
     Dates: start: 20100506
  3. FOSTEUM [Concomitant]
     Dosage: UNK, BID
  4. SOLIRIS [Suspect]
     Dosage: 900 MG, Q2W, MAINTENANCE DOSE
     Route: 042
  5. ASPIRIN [Concomitant]
     Dosage: 81 MG, QD
     Route: 048
  6. TRI-EST [Concomitant]
     Dosage: 50 MG, QD
     Route: 048

REACTIONS (5)
  - SNORING [None]
  - PRURITUS [None]
  - URTICARIA [None]
  - DYSPNOEA [None]
  - DRY SKIN [None]
